FAERS Safety Report 21294107 (Version 2)
Quarter: 2024Q4

REPORT INFORMATION
  Report Type: Report from Study
  Country: US (occurrence: US)
  Receive Date: 20220905
  Receipt Date: 20241205
  Transmission Date: 20250115
  Serious: No
  Sender: MERCK
  Company Number: US-009507513-2208USA005963

PATIENT
  Age: 59 Year
  Sex: Female

DRUGS (3)
  1. JANUVIA [Suspect]
     Active Substance: SITAGLIPTIN PHOSPHATE
     Indication: Type 2 diabetes mellitus
     Dosage: 100 MG, ONCE DAILY
     Route: 048
     Dates: start: 2019, end: 202207
  2. LODIPINE [LACIDIPINE] [Concomitant]
  3. GLYBURIDE [Concomitant]
     Active Substance: GLYBURIDE

REACTIONS (3)
  - Blood glucose increased [Not Recovered/Not Resolved]
  - Blood pressure increased [Not Recovered/Not Resolved]
  - Product dose omission issue [Unknown]

NARRATIVE: CASE EVENT DATE: 20220722
